FAERS Safety Report 5080853-7 (Version None)
Quarter: 2006Q3

REPORT INFORMATION
  Report Type: 
  Country: None (occurrence: None)
  Receive Date: 20060811
  Receipt Date: 20060801
  Transmission Date: 20061208
  Serious: Yes (Other)
  Sender: FDA-Public Use
  Company Number: 2006070791

PATIENT
  Age: 28 Year
  Sex: Male
  Weight: 63.5036 kg

DRUGS (4)
  1. ZOLOFT [Suspect]
     Indication: DEPRESSION
     Dosage: 50 MG (50 MG, 1 IN 1 D)
     Dates: start: 20060201, end: 20060101
  2. LYRICA [Concomitant]
     Indication: MUSCULOSKELETAL CHEST PAIN
     Dosage: 100 MG (50 MG, FREQUENCY: BID INTERVAL: EVERY DAY)
     Dates: start: 20060731
  3. KLONOPIN [Suspect]
     Indication: DRUG USE FOR UNKNOWN INDICATION
     Dosage: 1 MG (0.5 MG, 2 IN 1 D)
  4. PAXIL CR [Suspect]
     Indication: DRUG USE FOR UNKNOWN INDICATION

REACTIONS (15)
  - AGITATION [None]
  - ANXIETY [None]
  - ASTHENIA [None]
  - DIZZINESS [None]
  - DRUG LEVEL DECREASED [None]
  - DRUG TOLERANCE DECREASED [None]
  - DYSPNOEA [None]
  - EATING DISORDER [None]
  - FEELING ABNORMAL [None]
  - LOSS OF CONSCIOUSNESS [None]
  - MALAISE [None]
  - MYOCARDIAL INFARCTION [None]
  - PAIN [None]
  - SOMNOLENCE [None]
  - VISION BLURRED [None]
